FAERS Safety Report 7792102-7 (Version None)
Quarter: 2011Q3

REPORT INFORMATION
  Report Type: 
  Country: None (occurrence: None)
  Receive Date: 20110930
  Receipt Date: 20110930
  Transmission Date: 20111222
  Serious: Yes (Other)
  Sender: FDA-Public Use
  Company Number: None

PATIENT
  Sex: Male
  Weight: 75.2971 kg

DRUGS (1)
  1. AVODART [Suspect]

REACTIONS (1)
  - BREAST ENLARGEMENT [None]
